FAERS Safety Report 9370376 (Version 2)
Quarter: 2013Q3

REPORT INFORMATION
  Report Type: Report from Study
  Country: CA (occurrence: CA)
  Receive Date: 20130626
  Receipt Date: 20130705
  Transmission Date: 20140515
  Serious: Yes (Hospitalization)
  Sender: FDA-Public Use
  Company Number: CA-ABBOTT-13P-028-1057211-00

PATIENT
  Age: 69 Year
  Sex: Female

DRUGS (3)
  1. HUMIRA [Suspect]
     Indication: CROHN^S DISEASE
     Route: 058
     Dates: start: 20120629, end: 201302
  2. HUMIRA [Suspect]
     Route: 058
     Dates: start: 20130618, end: 20130618
  3. PUFFERS (NOS) [Concomitant]
     Indication: LUNG DISORDER

REACTIONS (8)
  - Injection site warmth [Recovering/Resolving]
  - Injection site swelling [Recovering/Resolving]
  - Injection site erythema [Recovering/Resolving]
  - Lung infection [Recovered/Resolved]
  - Injection site pain [Recovered/Resolved]
  - Injection site rash [Recovering/Resolving]
  - Nasopharyngitis [Not Recovered/Not Resolved]
  - Injection site mass [Recovered/Resolved]
